FAERS Safety Report 9342731 (Version 4)
Quarter: 2013Q3

REPORT INFORMATION
  Report Type: Spontaneous
  Country: JP (occurrence: JP)
  Receive Date: 20130611
  Receipt Date: 20130924
  Transmission Date: 20140515
  Serious: Yes (Life-Threatening, Hospitalization)
  Sender: FDA-Public Use
  Company Number: JP-JNJFOC-20130603787

PATIENT
  Age: 43 Year
  Sex: Male
  Weight: 66 kg

DRUGS (18)
  1. REMICADE [Suspect]
     Indication: ARTHRITIS
     Dosage: MORE THAN 100 DOSES
     Route: 042
     Dates: start: 200312
  2. REMICADE [Suspect]
     Indication: ARTHRITIS
     Route: 042
     Dates: start: 20130425
  3. REMICADE [Suspect]
     Indication: ARTHRITIS
     Route: 042
     Dates: start: 201011
  4. REMICADE [Suspect]
     Indication: ARTHRITIS
     Route: 042
     Dates: start: 201112
  5. REMICADE [Suspect]
     Indication: ARTHRITIS
     Route: 042
     Dates: start: 200501
  6. REMICADE [Suspect]
     Indication: CROHN^S DISEASE
     Route: 042
     Dates: start: 200501
  7. REMICADE [Suspect]
     Indication: CROHN^S DISEASE
     Dosage: MORE THAN 100 DOSES
     Route: 042
     Dates: start: 200312
  8. REMICADE [Suspect]
     Indication: CROHN^S DISEASE
     Route: 042
     Dates: start: 201011
  9. REMICADE [Suspect]
     Indication: CROHN^S DISEASE
     Route: 042
     Dates: start: 201112
  10. REMICADE [Suspect]
     Indication: CROHN^S DISEASE
     Route: 042
     Dates: start: 20130425
  11. METHOTREXATE [Suspect]
     Indication: ARTHRITIS
     Dosage: 8MG/ W
     Route: 048
     Dates: start: 20110421, end: 20130504
  12. METHOTREXATE [Suspect]
     Indication: INFLAMMATORY BOWEL DISEASE
     Dosage: 8MG/ W
     Route: 048
     Dates: start: 20110421, end: 20130504
  13. PROGRAF [Suspect]
     Indication: ARTHRITIS
     Route: 048
     Dates: start: 20111006, end: 20130528
  14. PROGRAF [Suspect]
     Indication: INFLAMMATORY BOWEL DISEASE
     Route: 048
     Dates: start: 20111006, end: 20130528
  15. PREDNISOLONE [Suspect]
     Indication: ARTHRITIS
     Route: 048
     Dates: start: 1991
  16. PREDNISOLONE [Suspect]
     Indication: INFLAMMATORY BOWEL DISEASE
     Route: 048
     Dates: start: 1991
  17. PENTASA [Concomitant]
     Indication: CROHN^S DISEASE
     Route: 048
     Dates: start: 1989
  18. BAKTAR [Concomitant]
     Indication: PROPHYLAXIS
     Route: 048
     Dates: start: 20110527

REACTIONS (2)
  - Extranodal NK/T-cell lymphoma, nasal type [Recovering/Resolving]
  - Arthritis enteropathic [Not Recovered/Not Resolved]
